FAERS Safety Report 9290962 (Version 1)
Quarter: 2013Q2

REPORT INFORMATION
  Report Type: Spontaneous
  Country: CA (occurrence: CA)
  Receive Date: 20130515
  Receipt Date: 20130515
  Transmission Date: 20140414
  Serious: Yes (Death)
  Sender: FDA-Public Use
  Company Number: CHPA2013CA008265

PATIENT
  Sex: Male

DRUGS (1)
  1. BUCKLEY^S UNKNOWN [Suspect]
     Indication: INCREASED UPPER AIRWAY SECRETION
     Dosage: UNK, UNK
     Route: 048

REACTIONS (1)
  - Death [Fatal]
